FAERS Safety Report 14889283 (Version 2)
Quarter: 2018Q2

REPORT INFORMATION
  Report Type: Spontaneous
  Country: FR (occurrence: FR)
  Receive Date: 20180514
  Receipt Date: 20180620
  Transmission Date: 20180711
  Serious: Yes (Other)
  Sender: FDA-Public Use
  Company Number: FR-MERCK KGAA-2047672

PATIENT
  Age: 39 Year
  Sex: Male
  Weight: 90 kg

DRUGS (2)
  1. INEXIUM [Concomitant]
     Active Substance: ESOMEPRAZOLE
  2. NOVOTHYROX [Suspect]
     Active Substance: LEVOTHYROXINE SODIUM
     Indication: THYROIDECTOMY
     Route: 048
     Dates: start: 201706, end: 201711

REACTIONS (10)
  - Fatigue [Recovering/Resolving]
  - Blood thyroid stimulating hormone normal [Not Recovered/Not Resolved]
  - Insomnia [Recovering/Resolving]
  - Anxiety [Recovering/Resolving]
  - Depression [Recovering/Resolving]
  - Stress [Recovering/Resolving]
  - Arrhythmia [Recovering/Resolving]
  - Hyperhidrosis [Recovering/Resolving]
  - Cold sweat [Recovering/Resolving]
  - Feeling jittery [Recovering/Resolving]

NARRATIVE: CASE EVENT DATE: 201706
